FAERS Safety Report 20945629 (Version 15)
Quarter: 2023Q4

REPORT INFORMATION
  Report Type: Spontaneous
  Country: US (occurrence: US)
  Receive Date: 20220610
  Receipt Date: 20231114
  Transmission Date: 20240110
  Serious: No
  Sender: FDA-Public Use
  Company Number: US-PFIZER INC-202200767356

PATIENT
  Age: 69 Year
  Sex: Female

DRUGS (4)
  1. EUCRISA [Suspect]
     Active Substance: CRISABOROLE
     Indication: Dermatitis atopic
     Dosage: 1 DF, AS NEEDED (APPLY TO AFFECTED AREAS 1-2X/DAY PRN)
     Route: 061
  2. EUCRISA [Suspect]
     Active Substance: CRISABOROLE
     Indication: Rash
     Dosage: 1 DF, 2X/DAY (APPLY TWICE DAILY TO HANDS AS NEEDED AS DIRECTED BY PHYSICIAN)
  3. EUCRISA [Suspect]
     Active Substance: CRISABOROLE
     Dosage: 1 DF, AS NEEDED (AAA ONE TO TWO TIMES DAILY AS NEEDED)
  4. EUCRISA [Suspect]
     Active Substance: CRISABOROLE
     Dosage: UNK (APPLY TO HANDS TWICE A DAY AS NEEDED AS DIRECTED)

REACTIONS (3)
  - Limb injury [Unknown]
  - Anxiety [Unknown]
  - Feeling abnormal [Unknown]
